FAERS Safety Report 17819957 (Version 1)
Quarter: 2020Q2

REPORT INFORMATION
  Report Type: Spontaneous
  Country: IT (occurrence: IT)
  Receive Date: 20200525
  Receipt Date: 20200525
  Transmission Date: 20200714
  Serious: Yes (Hospitalization, Other)
  Sender: FDA-Public Use
  Company Number: IT-AUROBINDO-AUR-APL-2020-024880

PATIENT
  Sex: Female

DRUGS (6)
  1. PARACETAMOL [Suspect]
     Active Substance: ACETAMINOPHEN
     Indication: HEADACHE
     Dosage: 24 GRAM, ONCE A DAY (IN THE FIRST TRIMESTER)
     Route: 065
  2. SERTRALINE [Suspect]
     Active Substance: SERTRALINE HYDROCHLORIDE
     Indication: PANIC ATTACK
     Dosage: 25 MILLIGRAM, ONCE A DAY
     Route: 065
  3. DIAZEPAM. [Concomitant]
     Active Substance: DIAZEPAM
     Dosage: UNK (ON REQUEST 1-2MG/DIE)
     Route: 065
  4. PARACETAMOL [Suspect]
     Active Substance: ACETAMINOPHEN
     Dosage: UNK (1-2 GRAM OCCASSIONALY IN THE SECOND AND THIRD TRIMESTER)
     Route: 065
  5. LORAZEPAM. [Concomitant]
     Active Substance: LORAZEPAM
     Indication: PANIC ATTACK
     Dosage: 10 DROP, ONCE A DAY
     Route: 065
  6. DIAZEPAM. [Concomitant]
     Active Substance: DIAZEPAM
     Indication: PANIC ATTACK
     Dosage: 12 MILLIGRAM, ONCE A DAY
     Route: 065

REACTIONS (9)
  - Right ventricular systolic pressure decreased [Recovered/Resolved]
  - Tricuspid valve disease [Recovered/Resolved]
  - Cardiomegaly [Recovered/Resolved]
  - Newborn persistent pulmonary hypertension [Recovering/Resolving]
  - Foetal exposure during pregnancy [Unknown]
  - Right ventricular dilatation [Recovered/Resolved]
  - Hypoxia [Unknown]
  - Right ventricular hypertrophy [Recovered/Resolved]
  - Ductus arteriosus premature closure [Unknown]
